FAERS Safety Report 6917777-3 (Version None)
Quarter: 2010Q3

REPORT INFORMATION
  Report Type: 
  Country: None (occurrence: None)
  Receive Date: 20100810
  Receipt Date: 20100729
  Transmission Date: 20110219
  Serious: Yes (Other)
  Sender: FDA-Public Use
  Company Number: BE-PFIZER INC-2010095695

PATIENT
  Age: 36 Year
  Sex: Male
  Weight: 95 kg

DRUGS (3)
  1. CHAMPIX [Suspect]
     Indication: SMOKING CESSATION THERAPY
     Dosage: 1 MG, 2X/DAY
     Route: 048
     Dates: start: 20100501
  2. COLCHICINE [Concomitant]
     Dosage: 1 UNK, 1X/DAY
  3. MOTILIUM ^JANSSEN^ [Concomitant]

REACTIONS (6)
  - FATIGUE [None]
  - HYPOCHONDRIASIS [None]
  - NASAL CONGESTION [None]
  - NYSTAGMUS [None]
  - POSITIVE ROMBERGISM [None]
  - VERTIGO [None]
